FAERS Safety Report 10261706 (Version 1)
Quarter: 2014Q2

REPORT INFORMATION
  Report Type: Spontaneous
  Country: US (occurrence: US)
  Receive Date: 20140626
  Receipt Date: 20140626
  Transmission Date: 20141212
  Serious: No
  Sender: FDA-Public Use
  Company Number: US-PFIZER INC-2014170453

PATIENT
  Age: 52 Year
  Sex: Female
  Weight: 86.53 kg

DRUGS (11)
  1. LYRICA [Suspect]
     Indication: FIBROMYALGIA
     Dosage: 75 MG, 2X/DAY
     Route: 048
  2. LYRICA [Suspect]
     Dosage: 100 MG, 2X/DAY
     Route: 048
  3. FLUOXETINE [Concomitant]
     Dosage: 20 MG, TAKE TWO CAPSULES BY MOUTH EVERY DAY
     Route: 048
  4. SIMVASTATIN [Concomitant]
     Dosage: 20 MG, TAKE ONE TABLET BY MOUTH AT BEDTIME
     Route: 048
  5. OMEPRAZOLE [Concomitant]
     Dosage: 20 MG,  TAKE ONE CAPSULE BY MOUTH EVERY DAY
     Route: 048
  6. ACETAMINOPHEN-HYDROCODONE [Concomitant]
     Indication: PAIN
     Dosage: 325 MG-5 MG ORAL TABLET, Q6 HRS, PRN: AS NEEDED FOR PAIN
  7. ALPRAZOLAM [Concomitant]
     Indication: ANXIETY
     Dosage: 0.25 MG, TID, PRN
     Route: 048
  8. NAPROXEN [Concomitant]
     Dosage: 500 MG, TAKE 1 TABLET BY MOUTH TWICE DAILY
     Route: 048
  9. CALCIUM WITH VITAMIN D [Concomitant]
     Dosage: 1 TAB, PO, QAM
     Route: 048
  10. VITAMIN B-12 [Concomitant]
     Dosage: UNK
  11. CENTRUM WOMEN^S [Concomitant]
     Dosage: 1 TAB(S), DAILY
     Route: 048

REACTIONS (1)
  - Drug effect incomplete [Unknown]
